FAERS Safety Report 7151382-1 (Version None)
Quarter: 2010Q4

REPORT INFORMATION
  Report Type: 
  Country: None (occurrence: None)
  Receive Date: 20101126
  Receipt Date: 20101105
  Transmission Date: 20110411
  Serious: No
  Sender: FDA-Public Use
  Company Number: 2010-00985

PATIENT
  Sex: Male

DRUGS (1)
  1. ZICAM COLD REMEDY GEL SWABS [Suspect]

REACTIONS (1)
  - ANOSMIA [None]
